FAERS Safety Report 8829823 (Version 1)
Quarter: 2012Q4

REPORT INFORMATION
  Report Type: 
  Country: US (occurrence: US)
  Receive Date: 20121008
  Receipt Date: 20121008
  Transmission Date: 20130627
  Serious: Yes (Other)
  Sender: FDA-Public Use
  Company Number: US-PFIZER INC-2012247847

PATIENT
  Age: 49 Year
  Sex: Female
  Weight: 112.47 kg

DRUGS (6)
  1. CHANTIX [Suspect]
     Indication: SMOKING CESSATION THERAPY
     Dosage: 0.5 mg, 1x/day
     Route: 048
     Dates: start: 20120917, end: 2012
  2. CHANTIX [Suspect]
     Dosage: 1 mg, 2x/day
     Route: 048
     Dates: start: 2012
  3. PERCOCET [Concomitant]
     Dosage: 5/325 mg, UNK
  4. LISINOPRIL W/HYDROCHLOROTHIAZIDE [Concomitant]
     Indication: HYPERTENSION
     Dosage: 20/25 mg, UNK
  5. ASPIRIN [Concomitant]
     Dosage: 81 mg
  6. FISH OIL [Concomitant]
     Dosage: 1200 mg

REACTIONS (2)
  - Swollen tongue [Unknown]
  - Glossodynia [Unknown]
